FAERS Safety Report 4735038-8 (Version None)
Quarter: 2005Q3

REPORT INFORMATION
  Report Type: 
  Country: None (occurrence: None)
  Receive Date: 20050804
  Receipt Date: 20020904
  Transmission Date: 20060218
  Serious: Yes (Disabling)
  Sender: FDA-Public Use
  Company Number: US-MERCK-0209USA00419

PATIENT
  Age: 51 Year
  Sex: Female
  Weight: 75 kg

DRUGS (11)
  1. VIOXX [Suspect]
     Indication: NECK PAIN
     Route: 048
     Dates: start: 20000926, end: 20001010
  2. VIOXX [Suspect]
     Route: 048
     Dates: start: 20001011, end: 20010612
  3. FOSAMAX [Concomitant]
     Route: 048
     Dates: start: 19990501
  4. EVISTA [Concomitant]
     Indication: HORMONE LEVEL ABNORMAL
     Route: 065
     Dates: start: 19981101, end: 20020827
  5. NITROSTAT [Concomitant]
     Indication: CHEST PAIN
     Route: 065
  6. VALTREX [Concomitant]
     Route: 065
  7. GLUCOSAMINE [Concomitant]
     Route: 065
  8. NEURONTIN [Concomitant]
     Route: 065
     Dates: end: 20000901
  9. NEURONTIN [Concomitant]
     Route: 065
     Dates: end: 20000901
  10. NEURONTIN [Concomitant]
     Route: 065
     Dates: end: 20000901
  11. VALIUM [Concomitant]
     Indication: INSOMNIA
     Route: 065

REACTIONS (45)
  - ANAEMIA [None]
  - ARTHROPOD BITE [None]
  - ARTHROPOD STING [None]
  - BLISTER [None]
  - BREAST INJURY [None]
  - BURSITIS [None]
  - CERVICOBRACHIAL SYNDROME [None]
  - CHEST PAIN [None]
  - CHEST WALL PAIN [None]
  - CHRONIC SINUSITIS [None]
  - CONJUNCTIVITIS [None]
  - CONSTIPATION [None]
  - CONTUSION [None]
  - CORONARY ARTERY DISEASE [None]
  - DRUG INTOLERANCE [None]
  - DYSPEPSIA [None]
  - FALL [None]
  - FRACTURE NONUNION [None]
  - GENERALISED ANXIETY DISORDER [None]
  - HYPERCALCAEMIA [None]
  - HYPOAESTHESIA [None]
  - INFECTION [None]
  - INFLUENZA [None]
  - INSOMNIA [None]
  - JOINT SPRAIN [None]
  - LIBIDO DECREASED [None]
  - METABOLIC DISORDER [None]
  - METASTATIC NEOPLASM [None]
  - MICTURITION URGENCY [None]
  - MULTIPLE FRACTURES [None]
  - OEDEMA PERIPHERAL [None]
  - OSTEOPENIA [None]
  - OSTEOPOROSIS [None]
  - OSTEOPOROTIC FRACTURE [None]
  - PANIC DISORDER [None]
  - ROAD TRAFFIC ACCIDENT [None]
  - SACROILIITIS [None]
  - SEBACEOUS HYPERPLASIA [None]
  - SINUSITIS [None]
  - SPINAL DISORDER [None]
  - THORACIC OUTLET SYNDROME [None]
  - URINARY TRACT INFECTION [None]
  - URINE LEUKOCYTE ESTERASE POSITIVE [None]
  - VIRAL PHARYNGITIS [None]
  - WEIGHT INCREASED [None]
